FAERS Safety Report 4737990-3 (Version None)
Quarter: 2005Q3

REPORT INFORMATION
  Report Type: 
  Country: None (occurrence: None)
  Receive Date: 20050803
  Receipt Date: 20050720
  Transmission Date: 20060218
  Serious: Yes (Hospitalization)
  Sender: FDA-Public Use
  Company Number: EM2005-0336

PATIENT
  Age: 57 Year
  Sex: Male
  Weight: 70 kg

DRUGS (8)
  1. PROLEUKIN [Suspect]
     Indication: HIV INFECTION
     Dosage: 4.5  MIU, QD, SUBCUTAN.
     Route: 058
     Dates: start: 20040930, end: 20041004
  2. PROLEUKIN [Suspect]
     Indication: HIV INFECTION
     Dosage: 4.5  MIU, QD, SUBCUTAN.
     Route: 058
     Dates: start: 20041028, end: 20041101
  3. PROLEUKIN [Suspect]
     Indication: HIV INFECTION
     Dosage: 4.5  MIU, QD, SUBCUTAN.
     Route: 058
     Dates: start: 20041209, end: 20041213
  4. PROLEUKIN [Suspect]
     Indication: HIV INFECTION
     Dosage: 4.5  MIU, QD, SUBCUTAN.
     Route: 058
     Dates: start: 20050127, end: 20050131
  5. PROLEUKIN [Suspect]
     Indication: HIV INFECTION
     Dosage: 4.5  MIU, QD, SUBCUTAN.
     Route: 058
     Dates: start: 20050303, end: 20050307
  6. TELZIR [Concomitant]
  7. ZIAGEN [Concomitant]
  8. NORVIR [Concomitant]

REACTIONS (13)
  - CD4 LYMPHOCYTES DECREASED [None]
  - ECZEMA [None]
  - EXCORIATION [None]
  - INSOMNIA [None]
  - NERVE CONDUCTION STUDIES ABNORMAL [None]
  - NEUROPATHY [None]
  - PRURIGO [None]
  - RASH PAPULAR [None]
  - SCAB [None]
  - SKIN HYPERPIGMENTATION [None]
  - SKIN LESION [None]
  - SKIN PAPILLOMA [None]
  - VIRAL LOAD INCREASED [None]
